FAERS Safety Report 21537785 (Version 1)
Quarter: 2022Q4

REPORT INFORMATION
  Report Type: Spontaneous
  Country: US (occurrence: US)
  Receive Date: 20221101
  Receipt Date: 20221101
  Transmission Date: 20230112
  Serious: No
  Sender: FDA-Public Use
  Company Number: US-SA-SAC20221029000577

PATIENT
  Age: 58 Year
  Sex: Female
  Weight: 103.4 kg

DRUGS (16)
  1. DUPIXENT [Suspect]
     Active Substance: DUPILUMAB
     Indication: Asthma
     Dosage: 300 MG, QOW
     Route: 058
     Dates: start: 202203
  2. XIIDRA [Concomitant]
     Active Substance: LIFITEGRAST
  3. BRIMONIDINE TARTRATE;DORZOLAMIDE HYDROCHLORIDE;TIMOLOL MALEATE [Concomitant]
  4. LATANOPROST [Concomitant]
     Active Substance: LATANOPROST
  5. VITAMIN D3 [Concomitant]
     Active Substance: CHOLECALCIFEROL
  6. ZINC [Concomitant]
     Active Substance: ZINC
  7. OMEPRAZOLE [Concomitant]
     Active Substance: OMEPRAZOLE
  8. AMLODIPINE BESYLATE [Concomitant]
     Active Substance: AMLODIPINE BESYLATE
  9. MONTELUKAST SODIUM [Concomitant]
     Active Substance: MONTELUKAST SODIUM
  10. QNASL [Concomitant]
     Active Substance: BECLOMETHASONE DIPROPIONATE
  11. SYMBICORT [Concomitant]
     Active Substance: BUDESONIDE\FORMOTEROL FUMARATE DIHYDRATE
  12. SPIRIVA [Concomitant]
     Active Substance: TIOTROPIUM BROMIDE MONOHYDRATE
  13. TRULICITY [Concomitant]
     Active Substance: DULAGLUTIDE
  14. CINNAMON\HERBALS [Concomitant]
     Active Substance: CINNAMON\HERBALS
  15. CETIRIZINE [Concomitant]
     Active Substance: CETIRIZINE HYDROCHLORIDE
  16. COUGH + COLD [CHLORPHENAMINE MALEATE;DEXTROMETHORPHAN HYDROBROMIDE] [Concomitant]

REACTIONS (1)
  - Dyspnoea [Unknown]

NARRATIVE: CASE EVENT DATE: 20220101
